FAERS Safety Report 8525242-5 (Version None)
Quarter: 2012Q3

REPORT INFORMATION
  Report Type: 
  Country: None (occurrence: None)
  Receive Date: 20120720
  Receipt Date: 20120717
  Transmission Date: 20120928
  Serious: Yes (Hospitalization, Other)
  Sender: FDA-Public Use
  Company Number: PHEH2012US009346

PATIENT
  Sex: Female

DRUGS (3)
  1. GILENYA [Suspect]
     Indication: MULTIPLE SCLEROSIS
     Dosage: 0.5 MG, QD
     Route: 048
     Dates: start: 20110706
  2. AMANTADINE HCL [Concomitant]
     Indication: FATIGUE
     Dosage: 100 MG, BID
  3. CYMBALTA [Concomitant]
     Indication: PAIN
     Dosage: 30 MG, BID
     Dates: start: 20120426

REACTIONS (8)
  - FALL [None]
  - NEURALGIA [None]
  - BALANCE DISORDER [None]
  - SLEEP DISORDER [None]
  - MUSCLE SPASMS [None]
  - HEADACHE [None]
  - PAIN IN EXTREMITY [None]
  - CONDITION AGGRAVATED [None]
